FAERS Safety Report 10651862 (Version 1)
Quarter: 2014Q4

REPORT INFORMATION
  Report Type: Spontaneous
  Country: CN (occurrence: None)
  Receive Date: 20141211
  Receipt Date: 20141211
  Transmission Date: 20150529
  Serious: Yes (Other)
  Sender: FDA-Public Use
  Company Number: 2014HINLIT1034

PATIENT
  Age: 50 Year
  Sex: Male

DRUGS (5)
  1. ENTECAVIR. [Suspect]
     Active Substance: ENTECAVIR
     Indication: CHRONIC HEPATITIS B
  2. TELBIVUDINE [Suspect]
     Active Substance: TELBIVUDINE
     Indication: CHRONIC HEPATITIS B
  3. ENTECAVIR+ TENOFOVIR(ENTECAVIR+ TENOFOVIR) [Concomitant]
  4. ADEFOVIR [Suspect]
     Active Substance: ADEFOVIR
     Indication: CHRONIC HEPATITIS B
     Dosage: 10 MG, QD, UKNOWN
  5. LAMIVUDINE (LAMIVUDINE) TABLET [Suspect]
     Active Substance: LAMIVUDINE
     Indication: CHRONIC HEPATITIS B

REACTIONS (7)
  - Renal injury [None]
  - Multiple-drug resistance [None]
  - Chronic kidney disease [None]
  - Renal transplant [None]
  - Hepatitis B [None]
  - Type 2 diabetes mellitus [None]
  - Haemodialysis [None]
